FAERS Safety Report 20120728 (Version 1)
Quarter: 2021Q4

REPORT INFORMATION
  Report Type: Spontaneous
  Country: US (occurrence: None)
  Receive Date: 20211126
  Receipt Date: 20211126
  Transmission Date: 20220303
  Serious: No
  Sender: FDA-Public Use
  Company Number: None

PATIENT
  Age: 63 Year
  Sex: Female
  Weight: 67.5 kg

DRUGS (1)
  1. SECRET ANTIPERSPIRANT POWDER FRESH [Suspect]
     Active Substance: ALUMINUM CHLOROHYDRATE
     Indication: Hyperhidrosis
     Dosage: OTHER STRENGTH : 1;?OTHER QUANTITY : 1 SPRAY(S);?
     Route: 061
     Dates: start: 20171030, end: 20211125

REACTIONS (2)
  - Axillary pain [None]
  - Axillary mass [None]

NARRATIVE: CASE EVENT DATE: 20211017
